FAERS Safety Report 6013464-7 (Version None)
Quarter: 2008Q4

REPORT INFORMATION
  Report Type: 
  Country: None (occurrence: None)
  Receive Date: 20081218
  Receipt Date: 20081218
  Transmission Date: 20090506
  Serious: Yes (Other)
  Sender: FDA-Public Use
  Company Number: None

PATIENT

DRUGS (1)
  1. SYNTHROID [Suspect]

REACTIONS (24)
  - ALOPECIA [None]
  - ANXIETY [None]
  - ARTHRALGIA [None]
  - BLEPHAROSPASM [None]
  - BREAST PAIN [None]
  - DAYDREAMING [None]
  - DEPRESSION [None]
  - EYE DISORDER [None]
  - FATIGUE [None]
  - GINGIVAL RECESSION [None]
  - HEART RATE INCREASED [None]
  - INFLAMMATION [None]
  - IRRITABILITY [None]
  - LUPUS-LIKE SYNDROME [None]
  - MUSCULAR WEAKNESS [None]
  - MYALGIA [None]
  - MYODESOPSIA [None]
  - OESOPHAGEAL SPASM [None]
  - PHARYNGEAL DISORDER [None]
  - PRURITUS [None]
  - RESORPTION BONE INCREASED [None]
  - SENSATION OF FOREIGN BODY [None]
  - VISION BLURRED [None]
  - WEIGHT INCREASED [None]
